FAERS Safety Report 4342774-4 (Version None)
Quarter: 2004Q2

REPORT INFORMATION
  Report Type: 
  Country: None (occurrence: None)
  Receive Date: 20040409
  Receipt Date: 20030812
  Transmission Date: 20050107
  Serious: Yes (Hospitalization)
  Sender: FDA-Public Use
  Company Number: 03P-163-0229275-00

PATIENT
  Age: 96 Year
  Sex: Female
  Weight: 65.7716 kg

DRUGS (2)
  1. DEPAKOTE [Suspect]
     Indication: EPILEPSY
     Dosage: 500 MG, 2 IN 1 D, PER ORAL
     Route: 048
     Dates: start: 20030501
  2. BLOOD PRESSURE PILL [Concomitant]

REACTIONS (2)
  - ALOPECIA [None]
  - PNEUMONIA [None]
